FAERS Safety Report 12316926 (Version 1)
Quarter: 2016Q2

REPORT INFORMATION
  Report Type: Spontaneous
  Country: US (occurrence: None)
  Receive Date: 20160428
  Receipt Date: 20160428
  Transmission Date: 20160815
  Serious: Yes (Other)
  Sender: FDA-Public Use
  Company Number: None

PATIENT
  Age: 70 Year
  Sex: Female
  Weight: 106.6 kg

DRUGS (7)
  1. SIMVASTATIN 20MG [Suspect]
     Active Substance: SIMVASTATIN
     Indication: HEPATITIS CHOLESTATIC
     Dosage: AT BEDTIME
     Route: 048
     Dates: start: 20160417, end: 20160418
  2. TUMS [Concomitant]
     Active Substance: CALCIUM CARBONATE
  3. OVALTINE BREAKFAST DRINK [Concomitant]
  4. HYDROCHLOROT [Concomitant]
     Active Substance: HYDROCHLOROTHIAZIDE
  5. ALLERGY PILL [Concomitant]
     Active Substance: UNSPECIFIED INGREDIENT
  6. CLOPIDOGREL [Concomitant]
     Active Substance: CLOPIDOGREL BISULFATE
  7. GAS-X EXTRA STRENGTH [Concomitant]
     Active Substance: DIMETHICONE

REACTIONS (4)
  - Dysuria [None]
  - Feeling abnormal [None]
  - Abdominal discomfort [None]
  - Dyspnoea [None]

NARRATIVE: CASE EVENT DATE: 20160418
